FAERS Safety Report 22642910 (Version 1)
Quarter: 2023Q2

REPORT INFORMATION
  Report Type: Spontaneous
  Country: US (occurrence: US)
  Receive Date: 20230627
  Receipt Date: 20230627
  Transmission Date: 20230721
  Serious: Yes (Hospitalization, Other)
  Sender: FDA-Public Use
  Company Number: US-ALKEM LABORATORIES LIMITED-US-ALKEM-2022-09161

PATIENT
  Age: 8 Year
  Sex: Female
  Weight: 26 kg

DRUGS (2)
  1. AMLODIPINE BESYLATE [Suspect]
     Active Substance: AMLODIPINE BESYLATE
     Indication: Cyclic vomiting syndrome
     Dosage: UNK, HS (4 TABLETS AT 8 PM)
     Route: 048
  2. AMITRIPTYLINE [Concomitant]
     Active Substance: AMITRIPTYLINE
     Indication: Cyclic vomiting syndrome
     Dosage: 40 MILLIGRAM, HS (FOUR 10 MG TABLETS))
     Route: 048

REACTIONS (3)
  - Sinus tachycardia [Recovering/Resolving]
  - Accidental exposure to product [Unknown]
  - Product dispensing error [Unknown]
